FAERS Safety Report 6990448-3 (Version None)
Quarter: 2010Q3

REPORT INFORMATION
  Report Type: 
  Country: None (occurrence: None)
  Receive Date: 20100916
  Receipt Date: 20100614
  Transmission Date: 20110219
  Serious: Yes (Other)
  Sender: FDA-Public Use
  Company Number: US-PFIZER INC-2010074818

PATIENT
  Sex: Male

DRUGS (1)
  1. LYRICA [Suspect]

REACTIONS (2)
  - LUNG DISORDER [None]
  - WEIGHT INCREASED [None]
